FAERS Safety Report 12565659 (Version 1)
Quarter: 2016Q3

REPORT INFORMATION
  Report Type: Spontaneous
  Country: US (occurrence: US)
  Receive Date: 20160718
  Receipt Date: 20160718
  Transmission Date: 20161109
  Serious: No
  Sender: FDA-Public Use
  Company Number: US-ASTRAZENECA-2016SE71286

PATIENT
  Sex: Female
  Weight: 87.1 kg

DRUGS (2)
  1. BYDUREON [Suspect]
     Active Substance: EXENATIDE
     Indication: TYPE 2 DIABETES MELLITUS
     Route: 058
     Dates: start: 201605
  2. LEVAMIR [Concomitant]
     Indication: DIABETES MELLITUS
     Route: 058
     Dates: start: 2013

REACTIONS (2)
  - Nodule [Unknown]
  - Pruritus [Unknown]
